FAERS Safety Report 8395082-9 (Version None)
Quarter: 2012Q2

REPORT INFORMATION
  Report Type: 
  Country: None (occurrence: None)
  Receive Date: 20120530
  Receipt Date: 20120517
  Transmission Date: 20120825
  Serious: Yes (Other)
  Sender: FDA-Public Use
  Company Number: US-VERTEX PHARMACEUTICALS INC.-AE-2012-007683

PATIENT

DRUGS (1)
  1. INCIVEK [Suspect]
     Indication: HEPATITIS C
     Route: 048

REACTIONS (16)
  - DIABETES MELLITUS INADEQUATE CONTROL [None]
  - DYSGEUSIA [None]
  - NAUSEA [None]
  - HAEMOGLOBIN DECREASED [None]
  - MALAISE [None]
  - RASH [None]
  - ANAEMIA [None]
  - ANAL PRURITUS [None]
  - PRURITUS [None]
  - DRUG INEFFECTIVE [None]
  - DIARRHOEA [None]
  - CARDIAC DISORDER [None]
  - DEPRESSION [None]
  - VOMITING [None]
  - ANORECTAL DISCOMFORT [None]
  - GENERALISED OEDEMA [None]
